FAERS Safety Report 5340721-X (Version None)
Quarter: 2007Q2

REPORT INFORMATION
  Report Type: 
  Country: None (occurrence: None)
  Receive Date: 20070405
  Receipt Date: 20070103
  Transmission Date: 20071010
  Serious: No
  Sender: FDA-Public Use
  Company Number: US200612003380

PATIENT
  Age: 55 Year
  Sex: Female
  Weight: 70.7 kg

DRUGS (5)
  1. CYMBALTA [Suspect]
     Dosage: SEE IMAGE
     Dates: start: 20060101
  2. CYMBALTA [Suspect]
     Dosage: SEE IMAGE
     Dates: start: 20060802
  3. SYNTHROID [Concomitant]
  4. PRAVACHOL [Concomitant]
  5. ACTONEL /USA/ (RISEDRONATE SODIUM) [Concomitant]

REACTIONS (1)
  - BLOOD PRESSURE INCREASED [None]
